FAERS Safety Report 11513335 (Version 1)
Quarter: 2015Q3

REPORT INFORMATION
  Report Type: Spontaneous
  Country: US (occurrence: None)
  Receive Date: 20150915
  Receipt Date: 20150915
  Transmission Date: 20151125
  Serious: Yes (Disabling)
  Sender: FDA-Public Use
  Company Number: None

PATIENT
  Age: 46 Year
  Sex: Female
  Weight: 88.45 kg

DRUGS (2)
  1. NATURE-THROID [Concomitant]
     Active Substance: THYROID, PORCINE
  2. GENERIC CONCERTA KREMERS [Suspect]
     Active Substance: METHYLPHENIDATE HYDROCHLORIDE
     Indication: ATTENTION DEFICIT/HYPERACTIVITY DISORDER
     Dosage: ONE PILL A DAY
     Route: 048
     Dates: start: 20150805, end: 20150905

REACTIONS (5)
  - Stress [None]
  - Anxiety [None]
  - Drug ineffective [None]
  - Feeling jittery [None]
  - Pruritus generalised [None]

NARRATIVE: CASE EVENT DATE: 20150805
